FAERS Safety Report 20635673 (Version 1)
Quarter: 2022Q1

REPORT INFORMATION
  Report Type: Spontaneous
  Country: US (occurrence: None)
  Receive Date: 20220324
  Receipt Date: 20220324
  Transmission Date: 20220423
  Serious: Yes (Hospitalization)
  Sender: FDA-Public Use
  Company Number: None

PATIENT
  Age: 29 Year
  Sex: Female

DRUGS (1)
  1. OPSUMIT [Suspect]
     Active Substance: MACITENTAN
     Indication: Pulmonary arterial hypertension
     Dosage: 10MG DAIY BY MOUTH?
     Route: 048
     Dates: start: 20220209, end: 202203

REACTIONS (2)
  - Pulmonary arterial hypertension [None]
  - Therapy cessation [None]

NARRATIVE: CASE EVENT DATE: 20220301
